FAERS Safety Report 5673752-0 (Version None)
Quarter: 2008Q1

REPORT INFORMATION
  Report Type: 
  Country: None (occurrence: None)
  Receive Date: 20080319
  Receipt Date: 20080313
  Transmission Date: 20080703
  Serious: No
  Sender: FDA-Public Use
  Company Number: US-BAXTER-2008BH002348

PATIENT
  Sex: Female

DRUGS (1)
  1. HEPARIN SODIUM [Suspect]
     Indication: CYSTITIS INTERSTITIAL
     Dosage: DOSE UNIT:UNKNOWN
     Route: 050

REACTIONS (2)
  - DIZZINESS [None]
  - NAUSEA [None]
